FAERS Safety Report 18874269 (Version 2)
Quarter: 2021Q1

REPORT INFORMATION
  Report Type: Spontaneous
  Country: US (occurrence: US)
  Receive Date: 20210210
  Receipt Date: 20210304
  Transmission Date: 20210420
  Serious: No
  Sender: FDA-Public Use
  Company Number: US-TEIKOKU PHARMA USA-TPU2021-00244

PATIENT
  Sex: Female

DRUGS (6)
  1. LIDOCAINE PATCH [Suspect]
     Active Substance: LIDOCAINE
     Indication: HERPES ZOSTER
  2. LIDODERM [Suspect]
     Active Substance: LIDOCAINE
     Indication: RHEUMATOID ARTHRITIS
  3. LIDOCAINE PATCH [Suspect]
     Active Substance: LIDOCAINE
     Indication: RHEUMATOID ARTHRITIS
     Route: 061
  4. LIDODERM [Suspect]
     Active Substance: LIDOCAINE
     Indication: PAIN
  5. LIDODERM [Suspect]
     Active Substance: LIDOCAINE
     Indication: HERPES ZOSTER
  6. LIDOCAINE PATCH [Suspect]
     Active Substance: LIDOCAINE
     Indication: PAIN

REACTIONS (2)
  - Fall [Unknown]
  - Rib fracture [Unknown]
